FAERS Safety Report 8998044 (Version 1)
Quarter: 2013Q1

REPORT INFORMATION
  Report Type: Spontaneous
  Country: GB (occurrence: GB)
  Receive Date: 20130104
  Receipt Date: 20130104
  Transmission Date: 20140127
  Serious: Yes (Other)
  Sender: FDA-Public Use
  Company Number: GB-BAYER-2013-000907

PATIENT
  Sex: Female

DRUGS (2)
  1. ACETYLSALICYLIC ACID [Suspect]
     Indication: ABORTION SPONTANEOUS
     Dosage: UNK
  2. HEPARIN [Concomitant]
     Dosage: DAILY TO BE TAKEN IN THE STOMACH

REACTIONS (5)
  - Exposure during pregnancy [None]
  - Abortion spontaneous [None]
  - Off label use [None]
  - Contusion [None]
  - Labelled drug-drug interaction medication error [None]
